FAERS Safety Report 5752816 (Version 3)
Quarter: 2020Q4

REPORT INFORMATION
  Report Type: Spontaneous
  Country: GB (occurrence: GB)
  Receive Date: 20050224
  Receipt Date: 20201120
  Transmission Date: 20210114
  Serious: Yes (Hospitalization)
  Sender: FDA-Public Use
  Company Number: GXKR2004GB00590

PATIENT
  Sex: Male
  Weight: 85 kg

DRUGS (1)
  1. ACETAMINOPHEN (PARACETAMOL) [Suspect]
     Active Substance: ACETAMINOPHEN
     Indication: PYREXIA
     Dosage: 4 G, QD (1 G, 4X/DAY)
     Route: 065

REACTIONS (4)
  - Hypernatraemia [Unknown]
  - Blood sodium increased [Not Recovered/Not Resolved]
  - Toxicity to various agents [Unknown]
  - Overdose [Unknown]
